FAERS Safety Report 5105749-3 (Version None)
Quarter: 2006Q3

REPORT INFORMATION
  Report Type: 
  Country: None (occurrence: None)
  Receive Date: 20060915
  Receipt Date: 20060907
  Transmission Date: 20061208
  Serious: Yes (Disabling, Other)
  Sender: FDA-Public Use
  Company Number: IT-BRISTOL-MYERS SQUIBB COMPANY-13502943

PATIENT
  Age: 62 Year
  Sex: Male

DRUGS (3)
  1. APROVEL TABS 300 MG [Suspect]
     Dosage: 300 MG ONE A DAY
     Route: 048
     Dates: start: 20030101, end: 20060813
  2. COAPROVEL TABS 150MG/12.5MG [Suspect]
     Dosage: 150 MG + 12.5 MG.
     Route: 048
     Dates: start: 20030101, end: 20060813
  3. APROVEL TABS 150 MG [Suspect]
     Dosage: DURATION: A FEW YEARS
     Route: 048
     Dates: end: 20030101

REACTIONS (5)
  - ANAEMIA [None]
  - ASTHENIA [None]
  - MYELODYSPLASTIC SYNDROME [None]
  - RETINAL EXUDATES [None]
  - VISUAL ACUITY REDUCED [None]
